FAERS Safety Report 21716958 (Version 2)
Quarter: 2022Q4

REPORT INFORMATION
  Report Type: Spontaneous
  Country: US (occurrence: US)
  Receive Date: 20221212
  Receipt Date: 20221230
  Transmission Date: 20230112
  Serious: No
  Sender: FDA-Public Use
  Company Number: US-SUNOVION-2022SUN003386AA

PATIENT
  Sex: Female

DRUGS (2)
  1. XOPENEX [Suspect]
     Active Substance: LEVALBUTEROL HYDROCHLORIDE
     Indication: Asthma
     Dosage: UNK, BID
     Route: 055
  2. XOPENEX [Suspect]
     Active Substance: LEVALBUTEROL HYDROCHLORIDE
     Dosage: UNK, EVERY TWO HOURS
     Route: 055

REACTIONS (5)
  - Therapeutic product effect variable [Unknown]
  - Frustration tolerance decreased [Unknown]
  - Device delivery system issue [Unknown]
  - Device issue [Unknown]
  - Expired product administered [Unknown]
